FAERS Safety Report 24827204 (Version 2)
Quarter: 2025Q1

REPORT INFORMATION
  Report Type: Spontaneous
  Country: US (occurrence: US)
  Receive Date: 20250109
  Receipt Date: 20250211
  Transmission Date: 20250409
  Serious: No
  Sender: SANOFI AVENTIS
  Company Number: US-SA-2025SA006504

PATIENT
  Age: 50 Year
  Sex: Female
  Weight: 61.224 kg

DRUGS (15)
  1. DUPIXENT [Suspect]
     Active Substance: DUPILUMAB
     Indication: Dermatitis atopic
     Dosage: 300 MG, QOW
     Route: 058
     Dates: start: 2024
  2. DUPIXENT [Suspect]
     Active Substance: DUPILUMAB
     Indication: Neurodermatitis
  3. RIZATRIPTAN [Concomitant]
     Active Substance: RIZATRIPTAN
  4. CELECOXIB [Concomitant]
     Active Substance: CELECOXIB
  5. MINOCYCLINE HYDROCHLORIDE [Concomitant]
     Active Substance: MINOCYCLINE HYDROCHLORIDE
  6. VEOZAH [Concomitant]
     Active Substance: FEZOLINETANT
  7. CLOBETASOL PROPIONATE [Concomitant]
     Active Substance: CLOBETASOL PROPIONATE
  8. NITROFURANTOIN MONOHYDRATE MACROCRYSTALS [Concomitant]
     Active Substance: NITROFURANTOIN\NITROFURANTOIN MONOHYDRATE
  9. DOXYCYCLINE HYCLATE [Concomitant]
     Active Substance: DOXYCYCLINE HYCLATE
  10. MIRABEGRON [Concomitant]
     Active Substance: MIRABEGRON
  11. YUVAFEM [Concomitant]
     Active Substance: ESTRADIOL HEMIHYDRATE
  12. PREDNISONE [Concomitant]
     Active Substance: PREDNISONE
  13. DOTTI [Concomitant]
     Active Substance: ESTRADIOL
  14. KETOCONAZOLE [Concomitant]
     Active Substance: KETOCONAZOLE
  15. PHENTERMINE HYDROCHLORIDE [Concomitant]
     Active Substance: PHENTERMINE HYDROCHLORIDE

REACTIONS (3)
  - Drug hypersensitivity [Unknown]
  - Accidental exposure to product [Unknown]
  - Exposure via skin contact [Unknown]

NARRATIVE: CASE EVENT DATE: 20240101
